FAERS Safety Report 17221763 (Version 3)
Quarter: 2020Q1

REPORT INFORMATION
  Report Type: Report from Study
  Country: JP (occurrence: JP)
  Receive Date: 20200101
  Receipt Date: 20200127
  Transmission Date: 20200409
  Serious: Yes (Hospitalization)
  Sender: FDA-Public Use
  Company Number: JP-ROCHE-2497933

PATIENT
  Age: 84 Year
  Sex: Male

DRUGS (13)
  1. DURVALUMAB. [Concomitant]
     Active Substance: DURVALUMAB
     Indication: HEPATOCELLULAR CARCINOMA
     Route: 065
     Dates: start: 20191017, end: 20191017
  2. BEVACIZUMAB. [Suspect]
     Active Substance: BEVACIZUMAB
     Route: 041
     Dates: start: 20191107, end: 20191107
  3. BAYASPIRIN [Concomitant]
     Active Substance: ASPIRIN
     Indication: CARDIOVASCULAR EVENT PROPHYLAXIS
     Dosage: DOSAGE IS UNCERTAIN.
     Route: 048
     Dates: start: 2009
  4. SILODOSIN. [Concomitant]
     Active Substance: SILODOSIN
     Indication: BENIGN PROSTATIC HYPERPLASIA
     Route: 048
     Dates: start: 2009
  5. BEVACIZUMAB. [Suspect]
     Active Substance: BEVACIZUMAB
     Indication: HEPATOCELLULAR CARCINOMA
     Route: 041
     Dates: start: 20191017, end: 20191017
  6. DURVALUMAB. [Concomitant]
     Active Substance: DURVALUMAB
     Route: 065
     Dates: start: 20191107, end: 20191107
  7. DURVALUMAB. [Concomitant]
     Active Substance: DURVALUMAB
     Route: 065
     Dates: start: 20191220, end: 20191220
  8. SENNOSIDE [SENNOSIDE A+B] [Concomitant]
     Active Substance: SENNOSIDES A AND B
     Indication: CONSTIPATION
     Route: 065
     Dates: start: 2009
  9. DILTIAZEM HYDROCHLORIDE. [Concomitant]
     Active Substance: DILTIAZEM HYDROCHLORIDE
     Indication: ANGINA PECTORIS
     Dosage: DOSAGE IS UNCERTAIN.
     Route: 065
     Dates: start: 2009
  10. BEVACIZUMAB. [Suspect]
     Active Substance: BEVACIZUMAB
     Route: 041
     Dates: start: 20191220
  11. REBAMIPIDE [Concomitant]
     Active Substance: REBAMIPIDE
     Indication: GASTRITIS PROPHYLAXIS
     Route: 048
     Dates: start: 2018
  12. BIO-THREE [Concomitant]
     Active Substance: HERBALS
     Indication: PROBIOTIC THERAPY
     Dosage: DOSAGE IS UNCERTAIN.
     Route: 048
     Dates: start: 2018
  13. ESOMEPRAZOLE. [Concomitant]
     Active Substance: ESOMEPRAZOLE MAGNESIUM
     Indication: GASTRITIS PROPHYLAXIS
     Dosage: DOSAGE IS UNCERTAIN.
     Route: 048
     Dates: start: 2017

REACTIONS (1)
  - Ascites [Recovering/Resolving]

NARRATIVE: CASE EVENT DATE: 20191128
